FAERS Safety Report 8053626-0 (Version None)
Quarter: 2012Q1

REPORT INFORMATION
  Report Type: 
  Country: None (occurrence: None)
  Receive Date: 20120118
  Receipt Date: 20120106
  Transmission Date: 20120608
  Serious: Yes (Other)
  Sender: FDA-Public Use
  Company Number: US-RB-032914-12

PATIENT
  Age: 67 Year
  Sex: Female

DRUGS (1)
  1. MUCINEX D [Suspect]
     Indication: CHRONIC OBSTRUCTIVE PULMONARY DISEASE
     Dosage: 1 MONTH AGO 2X A DAY WHILE AT THE HOSPITAL. 1 TABLET EVERY 12 HOURS UNTIL 1.5.12
     Route: 048

REACTIONS (2)
  - OFF LABEL USE [None]
  - HAEMOPTYSIS [None]
